FAERS Safety Report 12648321 (Version 1)
Quarter: 2016Q3

REPORT INFORMATION
  Report Type: Spontaneous
  Country: US (occurrence: US)
  Receive Date: 20160812
  Receipt Date: 20160812
  Transmission Date: 20161109
  Serious: No
  Sender: FDA-Public Use
  Company Number: US-IPCA LABORATORIES LIMITED-IPC201508-000563

PATIENT

DRUGS (1)
  1. METOPROLOL TARTRATE 50 MG TABLETS [Suspect]
     Active Substance: METOPROLOL TARTRATE

REACTIONS (1)
  - Alopecia [Unknown]
